FAERS Safety Report 6429516-3 (Version None)
Quarter: 2009Q4

REPORT INFORMATION
  Report Type: 
  Country: None (occurrence: None)
  Receive Date: 20091102
  Receipt Date: 20091023
  Transmission Date: 20100525
  Serious: Yes (Hospitalization)
  Sender: FDA-Public Use
  Company Number: UF#:062750-2009-0016

PATIENT
  Age: 20 Year
  Sex: Male
  Weight: 77.5651 kg

DRUGS (8)
  1. ZICAM - RAPIDMELTS WITH VITAMIN C [Suspect]
     Indication: NASOPHARYNGITIS
     Dosage: ONE DOSE, ONE DOSE
     Dates: start: 20091020, end: 20091020
  2. SEREVENT [Concomitant]
  3. ASMANEX TWISTHALER [Concomitant]
  4. UNKNOWN [Concomitant]
  5. CLARINEX [Concomitant]
  6. ALBUTEROL [Concomitant]
  7. DOYCYCLINE [Concomitant]
  8. SINGULAIR [Concomitant]

REACTIONS (7)
  - BACK PAIN [None]
  - HEADACHE [None]
  - INCOHERENT [None]
  - MUSCLE SPASMS [None]
  - MUSCULOSKELETAL PAIN [None]
  - NECK PAIN [None]
  - PYREXIA [None]
